FAERS Safety Report 21461404 (Version 3)
Quarter: 2023Q1

REPORT INFORMATION
  Report Type: Report from Study
  Country: JP (occurrence: JP)
  Receive Date: 20221015
  Receipt Date: 20230315
  Transmission Date: 20230417
  Serious: No
  Sender: FDA-Public Use
  Company Number: JP-ABBVIE-19K-087-3002444-00

PATIENT
  Age: 70 Year
  Sex: Female
  Weight: 51 kg

DRUGS (20)
  1. CARBIDOPA\LEVODOPA [Suspect]
     Active Substance: CARBIDOPA\LEVODOPA
     Indication: Parkinson^s disease
     Dosage: MD: 6 ML, CD: 2.6 ML/HR ? 16 HRS, ED: 1 ML/UNIT ? 0
     Route: 050
     Dates: start: 20200731, end: 20200731
  2. CARBIDOPA\LEVODOPA [Suspect]
     Active Substance: CARBIDOPA\LEVODOPA
     Dosage: MD: 9 ML?CD: 2.8 ML/HR ? 16 HRS?ED: 1 ML/UNIT ? 1 TIME
     Route: 050
     Dates: start: 20200408, end: 20200512
  3. CARBIDOPA\LEVODOPA [Suspect]
     Active Substance: CARBIDOPA\LEVODOPA
     Dosage: MD: 6 ML, CD: 3.0 ML/HR ? 16 HRS, ED: 1 ML/UNIT ? 1
     Route: 050
     Dates: start: 20200325, end: 20200407
  4. CARBIDOPA\LEVODOPA [Suspect]
     Active Substance: CARBIDOPA\LEVODOPA
     Dosage: MD: 6 ML, CD: 2.8 ML/HR ? 16 HRS, ED: 1 ML/UNIT ? 1
     Route: 050
     Dates: start: 20200722, end: 20200730
  5. CARBIDOPA\LEVODOPA [Suspect]
     Active Substance: CARBIDOPA\LEVODOPA
     Dosage: MD: 6 ML, CD: 1.6 ML/HR ? 16 HRS, ED: 1 ML/UNIT ? 1
     Route: 050
     Dates: start: 20191010, end: 20191011
  6. CARBIDOPA\LEVODOPA [Suspect]
     Active Substance: CARBIDOPA\LEVODOPA
     Route: 050
     Dates: start: 20191009, end: 20191009
  7. CARBIDOPA\LEVODOPA [Suspect]
     Active Substance: CARBIDOPA\LEVODOPA
     Dosage: MD: 6 ML, CD: 2.8 ML/HR ? 16 HRS, ED: 1 ML/UNIT ? 1
     Route: 050
     Dates: start: 20191021, end: 20200114
  8. CARBIDOPA\LEVODOPA [Suspect]
     Active Substance: CARBIDOPA\LEVODOPA
     Dosage: MD: 6 ML, CD: 1.6 ML/HR ? 16 HRS, ED: 1 ML/UNIT ? 0
     Route: 050
     Dates: start: 20200808, end: 20200811
  9. CARBIDOPA\LEVODOPA [Suspect]
     Active Substance: CARBIDOPA\LEVODOPA
     Dosage: MD: 6 ML, CD: 2.4 ML/HR ? 16 HRS, ED: 1 ML/UNIT ? 1
     Route: 050
     Dates: start: 20200212, end: 20200310
  10. CARBIDOPA\LEVODOPA [Suspect]
     Active Substance: CARBIDOPA\LEVODOPA
     Dosage: MD: 6 ML, CD: 2.7 ML/HR ? 16 HRS, ED: 1 ML/UNIT ? 1
     Route: 050
     Dates: start: 20200311, end: 20200324
  11. CARBIDOPA\LEVODOPA [Suspect]
     Active Substance: CARBIDOPA\LEVODOPA
     Dosage: MD: 6 ML, CD: 3.4 ML/HR ? 16 HRS, ED: 1 ML/UNIT ? 1
     Route: 050
     Dates: start: 20200701, end: 20200707
  12. CARBIDOPA\LEVODOPA [Suspect]
     Active Substance: CARBIDOPA\LEVODOPA
     Dosage: MD: 6 ML, CD: 1.3 ML/HR ? 16 HRS, ED: 1 ML/UNIT ? 0
     Route: 050
     Dates: start: 20200807, end: 20200807
  13. CARBIDOPA\LEVODOPA [Suspect]
     Active Substance: CARBIDOPA\LEVODOPA
     Dosage: MD: 6 ML, CD: 3.6 ML/HR ? 16 HRS, ED: 1 ML/UNIT ? 1
     Route: 050
     Dates: start: 20200513, end: 20200630
  14. CARBIDOPA\LEVODOPA [Suspect]
     Active Substance: CARBIDOPA\LEVODOPA
     Dosage: MD: 6 ML, CD: 2.0 ML/HR ? 16 HRS, ED: 1 ML/UNIT ? 0
     Route: 050
     Dates: start: 20200803, end: 20200804
  15. CARBIDOPA\LEVODOPA [Suspect]
     Active Substance: CARBIDOPA\LEVODOPA
     Dosage: MD: 6 ML, CD: 2.6 ML/HR ? 16 HRS, ED: 1 ML/UNIT ? 3
     Route: 050
     Dates: start: 20200115, end: 20200211
  16. CARBIDOPA\LEVODOPA [Suspect]
     Active Substance: CARBIDOPA\LEVODOPA
     Dosage: MD: 6 ML, CD: 2.5 ML/HR ? 16 HRS, ED: 1 ML/UNIT ? 1
     Route: 050
     Dates: start: 20191018, end: 20191020
  17. CARBIDOPA\LEVODOPA [Suspect]
     Active Substance: CARBIDOPA\LEVODOPA
     Dosage: MD: 6 ML, CD: 2.2 ML/HR ? 16 HRS, ED: 1 ML/UNIT ? 1
     Route: 050
     Dates: start: 20191013, end: 20191017
  18. CARBIDOPA\LEVODOPA [Suspect]
     Active Substance: CARBIDOPA\LEVODOPA
     Dosage: MD: 6 ML, CD: 3.2 ML/HR ? 16 HRS, ED: 1 ML/UNIT ? 1
     Route: 050
     Dates: start: 20200708, end: 20200721
  19. CARBIDOPA\LEVODOPA [Suspect]
     Active Substance: CARBIDOPA\LEVODOPA
     Dosage: MD: 6 ML, CD: 1.9 ML/HR ? 16 HRS, ED: 1 ML/UNIT ? 1
     Route: 050
     Dates: start: 20191012, end: 20191012
  20. CARBIDOPA\LEVODOPA [Suspect]
     Active Substance: CARBIDOPA\LEVODOPA
     Dosage: MD: 6 ML, CD: 2.2 ML/HR ? 16 HRS, ED: 1 ML/UNIT ? 0
     Route: 050
     Dates: start: 20200801, end: 20200802

REACTIONS (10)
  - Intentional medical device removal by patient [Not Recovered/Not Resolved]
  - Dyskinesia [Recovered/Resolved]
  - Muscular weakness [Unknown]
  - Dyskinesia [Recovering/Resolving]
  - Musculoskeletal stiffness [Unknown]
  - Hallucination [Recovering/Resolving]
  - Back pain [Unknown]
  - Incorrect route of product administration [Unknown]
  - Hypophagia [Unknown]
  - Dyskinesia [Recovered/Resolved]

NARRATIVE: CASE EVENT DATE: 20190101
